FAERS Safety Report 7356637-3 (Version None)
Quarter: 2011Q1

REPORT INFORMATION
  Report Type: 
  Country: None (occurrence: None)
  Receive Date: 20110316
  Receipt Date: 20110304
  Transmission Date: 20110831
  Serious: Yes (Hospitalization)
  Sender: FDA-Public Use
  Company Number: PHHY2011GB10384

PATIENT
  Age: 82 Year
  Sex: Female

DRUGS (10)
  1. THEOPHYLLINE [Concomitant]
     Dosage: 200 MG, BID
  2. CIPROFLOXACIN [Suspect]
     Indication: CHRONIC OBSTRUCTIVE PULMONARY DISEASE
     Dosage: 500 MG, UNK
     Route: 048
     Dates: start: 20110114
  3. PREDNISOLONE [Suspect]
     Dosage: 25 MG, QD
     Route: 048
     Dates: start: 20110119
  4. SALBUTAMOL [Concomitant]
     Dosage: 5 MG, QID
  5. CLOPIDOGREL [Concomitant]
     Dosage: 75 MG, QD
  6. PREDNISOLONE [Suspect]
     Indication: CHRONIC OBSTRUCTIVE PULMONARY DISEASE
     Dosage: 30 MG, QD
     Route: 048
     Dates: start: 20110114, end: 20110118
  7. CARBOCISTEINE [Concomitant]
     Dosage: 750 MG, TID
  8. SERETIDE [Concomitant]
     Dosage: 500 IU, BID
  9. DOXYCYCLINE [Concomitant]
     Dosage: UNK
  10. IPRATROPIUM BROMIDE [Concomitant]
     Dosage: 500 UG, QID

REACTIONS (1)
  - TENDON RUPTURE [None]
